FAERS Safety Report 5075976-2 (Version None)
Quarter: 2006Q3

REPORT INFORMATION
  Report Type: 
  Country: None (occurrence: None)
  Receive Date: 20060714
  Receipt Date: 20060505
  Transmission Date: 20061208
  Serious: No
  Sender: FDA-Public Use
  Company Number: 2006SP001980

PATIENT
  Age: 62 Year
  Sex: Female
  Weight: 97.5234 kg

DRUGS (4)
  1. LUNESTA [Suspect]
     Indication: INSOMNIA
     Dosage: 3 MG;1X;ORAL
     Route: 048
     Dates: start: 20060504, end: 20060504
  2. VITAMINS [Concomitant]
  3. XANAX [Concomitant]
  4. THYROID TAB [Concomitant]

REACTIONS (5)
  - DRUG INEFFECTIVE [None]
  - DYSGEUSIA [None]
  - DYSPEPSIA [None]
  - INITIAL INSOMNIA [None]
  - NAUSEA [None]
